FAERS Safety Report 13685185 (Version 1)
Quarter: 2017Q2

REPORT INFORMATION
  Report Type: Spontaneous
  Country: US (occurrence: US)
  Receive Date: 20170623
  Receipt Date: 20170623
  Transmission Date: 20170830
  Serious: No
  Sender: FDA-Public Use
  Company Number: US-INTERPRAG-PM-OCA2017-00356

PATIENT

DRUGS (19)
  1. FLOVENT [Suspect]
     Active Substance: FLUTICASONE PROPIONATE
  2. MUPIROCIN. [Concomitant]
     Active Substance: MUPIROCIN
     Route: 061
  3. NYSTATIN. [Concomitant]
     Active Substance: NYSTATIN
  4. OMEPRAZOLE. [Concomitant]
     Active Substance: OMEPRAZOLE
  5. CEPHALEXIN                         /00145501/ [Concomitant]
     Active Substance: CEPHALEXIN
  6. ATORVASTATIN [Concomitant]
     Active Substance: ATORVASTATIN
  7. BENZONATATE. [Concomitant]
     Active Substance: BENZONATATE
  8. METOPROLOL. [Concomitant]
     Active Substance: METOPROLOL
  9. VIRTUSSIN AC [Concomitant]
     Active Substance: CODEINE PHOSPHATE\GUAIFENESIN
  10. WARFARIN [Concomitant]
     Active Substance: WARFARIN
  11. COLCHICINE. [Concomitant]
     Active Substance: COLCHICINE
  12. CYANOCOBALAMIN. [Concomitant]
     Active Substance: CYANOCOBALAMIN
     Route: 030
  13. SERTRALINE [Concomitant]
     Active Substance: SERTRALINE HYDROCHLORIDE
  14. FOLIC ACID. [Concomitant]
     Active Substance: FOLIC ACID
  15. OCALIVA [Suspect]
     Active Substance: OBETICHOLIC ACID
     Indication: BILIARY CIRRHOSIS
     Dosage: 5 MG, QD
     Route: 048
     Dates: start: 20170309
  16. ENOXAPARIN [Concomitant]
     Active Substance: ENOXAPARIN
  17. MONTELUKAST [Concomitant]
     Active Substance: MONTELUKAST SODIUM
  18. TAMSULOSIN [Concomitant]
     Active Substance: TAMSULOSIN
  19. URSODIOL. [Concomitant]
     Active Substance: URSODIOL

REACTIONS (1)
  - Dysphonia [Unknown]
